FAERS Safety Report 15464640 (Version 2)
Quarter: 2018Q4

REPORT INFORMATION
  Report Type: Spontaneous
  Country: US (occurrence: US)
  Receive Date: 20181004
  Receipt Date: 20181004
  Transmission Date: 20190204
  Serious: No
  Sender: FDA-Public Use
  Company Number: US-MELINTA-US-MDCO-17-00559

PATIENT
  Age: 38 Year
  Sex: Male
  Weight: 124.85 kg

DRUGS (2)
  1. ORBACTIV [Suspect]
     Active Substance: ORITAVANCIN
     Indication: WOUND TREATMENT
     Dosage: NOT PROVIDED
     Route: 041
     Dates: start: 20171103, end: 20171103
  2. ORBACTIV [Suspect]
     Active Substance: ORITAVANCIN
     Indication: ANTIBIOTIC THERAPY

REACTIONS (2)
  - Rash [Recovered/Resolved]
  - Pruritus [Recovered/Resolved]

NARRATIVE: CASE EVENT DATE: 20171103
